FAERS Safety Report 13034236 (Version 1)
Quarter: 2016Q4

REPORT INFORMATION
  Report Type: Spontaneous
  Country: US (occurrence: US)
  Receive Date: 20161215
  Receipt Date: 20161215
  Transmission Date: 20170207
  Serious: Yes (Life-Threatening, Hospitalization, Disabling)
  Sender: FDA-Public Use
  Company Number: None

PATIENT
  Age: 82 Year
  Sex: Male
  Weight: 38.25 kg

DRUGS (13)
  1. PRADAXA [Suspect]
     Active Substance: DABIGATRAN ETEXILATE MESYLATE
     Indication: LABORATORY TEST ABNORMAL
     Route: 042
     Dates: start: 20160706, end: 20160708
  2. POTASSIUM CL [Concomitant]
     Active Substance: POTASSIUM CHLORIDE
  3. LAMOTRIGINE. [Concomitant]
     Active Substance: LAMOTRIGINE
  4. FUREOSEMIDE [Concomitant]
  5. RANEXA [Concomitant]
     Active Substance: RANOLAZINE
  6. ARIPIPRAZOLE. [Concomitant]
     Active Substance: ARIPIPRAZOLE
  7. LISINOPRIL. [Concomitant]
     Active Substance: LISINOPRIL
  8. VIMPAT [Suspect]
     Active Substance: LACOSAMIDE
     Indication: SEIZURE
     Route: 048
  9. LEVOTHYROXINE. [Concomitant]
     Active Substance: LEVOTHYROXINE
  10. LEVETIRACETAM. [Concomitant]
     Active Substance: LEVETIRACETAM
  11. VIMPAT [Suspect]
     Active Substance: LACOSAMIDE
     Indication: CEREBRAL HAEMORRHAGE
     Route: 048
  12. METOPROLOL ER [Concomitant]
     Active Substance: METOPROLOL SUCCINATE
  13. CITAOPRAM [Concomitant]

REACTIONS (11)
  - Cerebral haemorrhage [None]
  - Asthenia [None]
  - Furuncle [None]
  - Seizure [None]
  - Weight decreased [None]
  - Gait disturbance [None]
  - Psoriasis [None]
  - Impaired driving ability [None]
  - Confusional state [None]
  - Disorientation [None]
  - Mental status changes [None]

NARRATIVE: CASE EVENT DATE: 20160706
